FAERS Safety Report 6264970-1 (Version None)
Quarter: 2009Q3

REPORT INFORMATION
  Report Type: 
  Country: None (occurrence: None)
  Receive Date: 20090709
  Receipt Date: 20090709
  Transmission Date: 20100115
  Serious: Yes (Life-Threatening, Hospitalization)
  Sender: FDA-Public Use
  Company Number: None

PATIENT
  Age: 76 Year
  Sex: Female
  Weight: 42.6 kg

DRUGS (1)
  1. VENOFER [Suspect]
     Indication: IRON DEFICIENCY ANAEMIA
     Dosage: 300MG X ONE OVER 90 MIN IVPB
     Route: 042
     Dates: start: 20090626

REACTIONS (2)
  - BLOOD PRESSURE IMMEASURABLE [None]
  - HYPOTENSION [None]
